FAERS Safety Report 8373129-3 (Version None)
Quarter: 2012Q2

REPORT INFORMATION
  Report Type: 
  Country: None (occurrence: None)
  Receive Date: 20120521
  Receipt Date: 20120516
  Transmission Date: 20120825
  Serious: Yes (Life-Threatening, Hospitalization, Congenital Anomaly, Other)
  Sender: FDA-Public Use
  Company Number: US-PFIZER INC-2010109651

PATIENT
  Sex: Female
  Weight: 2.2 kg

DRUGS (6)
  1. SYNTHROID [Concomitant]
     Indication: HYPOTHYROIDISM
     Dosage: UNK
     Route: 064
  2. ZOFRAN [Concomitant]
     Indication: NAUSEA
     Dosage: 8 MG, UNK
     Route: 064
     Dates: start: 20081022
  3. PROMETRIUM [Concomitant]
     Dosage: 200 MG, UNK
     Route: 064
  4. ZOLOFT [Suspect]
     Indication: ANXIETY
  5. ZOLOFT [Suspect]
     Indication: DEPRESSION
     Dosage: 150 MG, 1X/DAY
     Route: 064
  6. SERTRALINE HYDROCHLORIDE [Concomitant]
     Dosage: 100 MG, UNK
     Route: 064

REACTIONS (4)
  - JAUNDICE [None]
  - FOETAL EXPOSURE DURING PREGNANCY [None]
  - COARCTATION OF THE AORTA [None]
  - CONGENITAL ANOMALY [None]
